FAERS Safety Report 11026473 (Version 1)
Quarter: 2015Q2

REPORT INFORMATION
  Report Type: Spontaneous
  Country: US (occurrence: US)
  Receive Date: 20150414
  Receipt Date: 20150414
  Transmission Date: 20150821
  Serious: No
  Sender: FDA-Public Use
  Company Number: US-CUBIST PHARMACEUTICALS, INC.-2015CBST000376

PATIENT

DRUGS (1)
  1. SIVEXTRO [Suspect]
     Active Substance: TEDIZOLID PHOSPHATE
     Indication: PRODUCT USED FOR UNKNOWN INDICATION
     Dosage: UNK UNK, UNK
     Route: 048

REACTIONS (1)
  - Rash [Unknown]
